FAERS Safety Report 25871921 (Version 1)
Quarter: 2025Q4

REPORT INFORMATION
  Report Type: Spontaneous
  Country: US (occurrence: US)
  Receive Date: 20251002
  Receipt Date: 20251002
  Transmission Date: 20260117
  Serious: No
  Sender: NOVARTIS
  Company Number: US-002147023-NVSC2025US149375

PATIENT
  Sex: Female

DRUGS (1)
  1. LEQVIO [Suspect]
     Active Substance: INCLISIRAN SODIUM
     Indication: Low density lipoprotein increased
     Dosage: 189 MG, OTHER (DAY 1 / MONTH 3 / EVERY 6 MONTHS)
     Route: 058
     Dates: start: 20250601, end: 20250823

REACTIONS (1)
  - Injection site rash [Recovered/Resolved]
